FAERS Safety Report 6752976-5 (Version None)
Quarter: 2010Q2

REPORT INFORMATION
  Report Type: 
  Country: None (occurrence: None)
  Receive Date: 20100602
  Receipt Date: 20100602
  Transmission Date: 20101027
  Serious: Yes (Other)
  Sender: FDA-Public Use
  Company Number: None

PATIENT
  Sex: Male
  Weight: 95.2554 kg

DRUGS (3)
  1. CYMBALTA [Suspect]
     Indication: ANXIETY
     Dosage: 90MG (60+30) IN MORNING
     Dates: start: 20100402
  2. CYMBALTA [Suspect]
     Indication: DEPRESSION
     Dosage: 90MG (60+30) IN MORNING
     Dates: start: 20100402
  3. CYMBALTA [Suspect]
     Indication: PAIN
     Dosage: 90MG (60+30) IN MORNING
     Dates: start: 20100402

REACTIONS (2)
  - DYSURIA [None]
  - EJACULATION DISORDER [None]
